FAERS Safety Report 20457184 (Version 1)
Quarter: 2022Q1

REPORT INFORMATION
  Report Type: Spontaneous
  Country: US (occurrence: US)
  Receive Date: 20220210
  Receipt Date: 20220210
  Transmission Date: 20220423
  Serious: No
  Sender: FDA-Public Use
  Company Number: US-PFIZER INC-202200004279

PATIENT
  Age: 55 Year
  Sex: Male

DRUGS (2)
  1. VORICONAZOLE [Suspect]
     Active Substance: VORICONAZOLE
     Dosage: 200 MG, 3X/DAY
  2. VORICONAZOLE [Suspect]
     Active Substance: VORICONAZOLE
     Dosage: 100 MG, 3X/DAY (50 MG TABLET, TAKE 2 TABLETS BY MOUTH THREE TIMES DAILY, QTY 180)
     Route: 048

REACTIONS (2)
  - Off label use [Unknown]
  - Liver function test abnormal [Unknown]
